FAERS Safety Report 17894371 (Version 2)
Quarter: 2022Q2

REPORT INFORMATION
  Report Type: Spontaneous
  Country: US (occurrence: US)
  Receive Date: 20200615
  Receipt Date: 20220607
  Transmission Date: 20220721
  Serious: Yes (Death, Other)
  Sender: FDA-Public Use
  Company Number: US-SAARTEMIS-SAC202006100193

PATIENT
  Age: 47 Year
  Sex: Female

DRUGS (1)
  1. ZANTAC [Suspect]
     Active Substance: RANITIDINE HYDROCHLORIDE
     Indication: Dyspepsia
     Dosage: UNK
     Route: 065
     Dates: start: 201101, end: 201808

REACTIONS (1)
  - Colorectal cancer stage IV [Fatal]

NARRATIVE: CASE EVENT DATE: 20180801
